FAERS Safety Report 8445800-6 (Version None)
Quarter: 2012Q2

REPORT INFORMATION
  Report Type: 
  Country: None (occurrence: None)
  Receive Date: 20120618
  Receipt Date: 20120612
  Transmission Date: 20120825
  Serious: Yes (Hospitalization)
  Sender: FDA-Public Use
  Company Number: US-CELGENEUS-163-21880-12053014

PATIENT
  Sex: Male
  Weight: 70.37 kg

DRUGS (8)
  1. REVLIMID [Suspect]
     Dosage: 5 MILLIGRAM
     Route: 048
     Dates: start: 20100501
  2. ASPIRIN [Concomitant]
     Route: 065
  3. LUNESTA [Concomitant]
     Route: 065
  4. FLUDROCORTISONE ACETATE [Concomitant]
     Route: 065
  5. REVLIMID [Suspect]
     Dosage: 25 MILLIGRAM
     Route: 048
     Dates: start: 20120502, end: 20120520
  6. ALLOPURINOL [Concomitant]
     Route: 065
  7. ARANESP [Concomitant]
     Route: 065
  8. SODIUM BICARBONATE [Concomitant]
     Route: 065

REACTIONS (2)
  - SEPSIS [None]
  - RENAL DISORDER [None]
